FAERS Safety Report 26108553 (Version 1)
Quarter: 2025Q4

REPORT INFORMATION
  Report Type: Spontaneous
  Country: US (occurrence: US)
  Receive Date: 20251201
  Receipt Date: 20251201
  Transmission Date: 20260118
  Serious: Yes (Other)
  Sender: BAYER HEALTHCARE LLC
  Company Number: US-BAYER-2025A157896

PATIENT
  Age: 93 Year
  Sex: Female

DRUGS (12)
  1. BAYER ASPIRIN [Suspect]
     Active Substance: ASPIRIN
     Dosage: 325 MG, QD
     Route: 065
  2. JAKAFI [Concomitant]
     Active Substance: RUXOLITINIB
     Indication: Polycythaemia vera
     Dosage: 5 MG, BID
     Route: 048
     Dates: start: 20230830
  3. ATENOLOL [Concomitant]
     Active Substance: ATENOLOL
  4. AZELASTINE [Concomitant]
     Active Substance: AZELASTINE
  5. CETIRIZINE [Concomitant]
     Active Substance: CETIRIZINE HYDROCHLORIDE
  6. COLLAGEN [Concomitant]
     Active Substance: COLLAGEN
  7. COSOPT [Concomitant]
     Active Substance: DORZOLAMIDE HYDROCHLORIDE\TIMOLOL MALEATE
  8. HYDREA [Concomitant]
     Active Substance: HYDROXYUREA
  9. FISH OIL [Concomitant]
     Active Substance: FISH OIL
  10. RAMIPRIL [Concomitant]
     Active Substance: RAMIPRIL
  11. RHOPRESSA [Concomitant]
     Active Substance: NETARSUDIL MESYLATE
  12. XALATAN [Concomitant]
     Active Substance: LATANOPROST

REACTIONS (2)
  - Blood loss anaemia [Unknown]
  - Gastric ulcer [Unknown]

NARRATIVE: CASE EVENT DATE: 20250701
